FAERS Safety Report 6128287-8 (Version None)
Quarter: 2009Q1

REPORT INFORMATION
  Report Type: 
  Country: None (occurrence: None)
  Receive Date: 20090323
  Receipt Date: 20090313
  Transmission Date: 20090719
  Serious: Yes (Hospitalization, Congenital Anomaly)
  Sender: FDA-Public Use
  Company Number: A0682201A

PATIENT
  Sex: Male
  Weight: 3.6 kg

DRUGS (2)
  1. PAXIL [Suspect]
     Indication: DEPRESSION
     Dosage: 40MG UNKNOWN
     Dates: start: 20000101, end: 20050101
  2. PAROXETINE HCL [Suspect]
     Indication: DEPRESSION
     Dates: start: 20040818, end: 20050127

REACTIONS (7)
  - ATRIAL SEPTAL DEFECT [None]
  - CONGENITAL AORTIC STENOSIS [None]
  - DRUG EXPOSURE DURING PREGNANCY [None]
  - PATENT DUCTUS ARTERIOSUS [None]
  - PULMONARY ARTERY STENOSIS CONGENITAL [None]
  - TRICUSPID VALVE INCOMPETENCE [None]
  - VENTRICULAR HYPOPLASIA [None]
